FAERS Safety Report 7272593-0 (Version None)
Quarter: 2011Q1

REPORT INFORMATION
  Report Type: 
  Country: None (occurrence: None)
  Receive Date: 20110131
  Receipt Date: 20110131
  Transmission Date: 20110831
  Serious: Yes (Hospitalization)
  Sender: FDA-Public Use
  Company Number: None

PATIENT
  Age: 61 Year
  Sex: Male
  Weight: 150.4 kg

DRUGS (1)
  1. DICLOFENAC SODIUM [Suspect]
     Indication: PAIN
     Dosage: 50 MG TID PO
     Route: 048
     Dates: start: 20050504, end: 20100903

REACTIONS (1)
  - GASTROINTESTINAL HAEMORRHAGE [None]
